FAERS Safety Report 25637091 (Version 1)
Quarter: 2025Q3

REPORT INFORMATION
  Report Type: Spontaneous
  Country: CA (occurrence: CA)
  Receive Date: 20250804
  Receipt Date: 20250804
  Transmission Date: 20251020
  Serious: Yes (Death)
  Sender: GRIFOLS
  Company Number: CA-IGSA-BIG0036897

PATIENT
  Sex: Male

DRUGS (1)
  1. ALBUMIN (HUMAN) [Suspect]
     Active Substance: ALBUMIN HUMAN
     Indication: Product used for unknown indication
     Route: 042

REACTIONS (1)
  - Death [Fatal]
